FAERS Safety Report 4741833-1 (Version None)
Quarter: 2005Q3

REPORT INFORMATION
  Report Type: 
  Country: None (occurrence: None)
  Receive Date: 20050808
  Receipt Date: 20050727
  Transmission Date: 20060218
  Serious: Yes (Hospitalization)
  Sender: FDA-Public Use
  Company Number: 2005107720

PATIENT
  Age: 48 Year
  Sex: Male

DRUGS (3)
  1. CABERGOLINE [Suspect]
     Indication: PARKINSON'S DISEASE
     Dosage: 8 MG (I MG, ONCE DAILY), ORAL
     Route: 048
  2. LEVODOPA (LEVODOPA) [Concomitant]
  3. COMTAN [Concomitant]

REACTIONS (1)
  - PLEURAL FIBROSIS [None]
